FAERS Safety Report 8073454-X (Version None)
Quarter: 2012Q1

REPORT INFORMATION
  Report Type: 
  Country: None (occurrence: None)
  Receive Date: 20120126
  Receipt Date: 20120126
  Transmission Date: 20120608
  Serious: Yes (Hospitalization)
  Sender: FDA-Public Use
  Company Number: None

PATIENT
  Age: 4 Year
  Sex: Male
  Weight: 23.586 kg

DRUGS (2)
  1. TRIAMINIC DAYTIME COLD AND COUGH [Suspect]
     Indication: NASOPHARYNGITIS
  2. TRIAMINIC DAYTIME COLD AND COUGH [Suspect]
     Indication: COUGH

REACTIONS (3)
  - HALLUCINATION [None]
  - SCREAMING [None]
  - FORMICATION [None]
